FAERS Safety Report 16451564 (Version 1)
Quarter: 2019Q2

REPORT INFORMATION
  Report Type: Spontaneous
  Country: US (occurrence: US)
  Receive Date: 20190619
  Receipt Date: 20190619
  Transmission Date: 20190711
  Serious: No
  Sender: FDA-Public Use
  Company Number: US-GLAXOSMITHKLINE-US2019106751

PATIENT
  Age: 66 Year
  Sex: Female

DRUGS (2)
  1. ABREVA [Suspect]
     Active Substance: DOCOSANOL
     Indication: ORAL HERPES
     Dosage: UNK,(5 TIMES ADAY)
     Dates: start: 20190611, end: 20190611
  2. ABREVA [Suspect]
     Active Substance: DOCOSANOL
     Dosage: UNK,(5 TIMES A DAY)
     Dates: start: 20190611, end: 20190611

REACTIONS (4)
  - Speech disorder [Unknown]
  - Lip dry [Unknown]
  - Incorrect product administration duration [Unknown]
  - Lip swelling [Unknown]

NARRATIVE: CASE EVENT DATE: 20190611
